FAERS Safety Report 14344498 (Version 1)
Quarter: 2018Q1

REPORT INFORMATION
  Report Type: Spontaneous
  Country: US (occurrence: US)
  Receive Date: 20180102
  Receipt Date: 20180102
  Transmission Date: 20180509
  Serious: Yes (Death, Other)
  Sender: FDA-Public Use
  Company Number: US-NAPPMUNDI-USA-2017-0140471

PATIENT
  Age: 1 Year
  Sex: Female

DRUGS (1)
  1. MORPHINE SULFATE (SIMILAR TO NDA 19-516) [Suspect]
     Active Substance: MORPHINE SULFATE
     Indication: ACCIDENTAL EXPOSURE TO PRODUCT BY CHILD
     Dosage: UNK
     Route: 048

REACTIONS (6)
  - Decreased appetite [Unknown]
  - Accidental exposure to product by child [Unknown]
  - Somnolence [Unknown]
  - Overdose [Fatal]
  - Unresponsive to stimuli [Not Recovered/Not Resolved]
  - Malaise [Unknown]
